FAERS Safety Report 7584533-5 (Version None)
Quarter: 2011Q2

REPORT INFORMATION
  Report Type: 
  Country: None (occurrence: None)
  Receive Date: 20110630
  Receipt Date: 20110628
  Transmission Date: 20111010
  Serious: Yes (Death, Hospitalization, Other)
  Sender: FDA-Public Use
  Company Number: US-PFIZER INC-2011144781

PATIENT
  Sex: Female

DRUGS (8)
  1. AMLODIPINE [Concomitant]
     Dosage: UNK
  2. WARFARIN [Concomitant]
     Dosage: UNK
  3. ELAVIL [Concomitant]
     Dosage: UNK
  4. TYGACIL [Suspect]
     Indication: PROPHYLAXIS
     Dosage: 50 MG, 2X/DAY
     Route: 042
     Dates: start: 20110611, end: 20110601
  5. VALSARTAN [Concomitant]
     Dosage: UNK
  6. ZOCOR [Concomitant]
     Dosage: UNK
  7. VERAPAMIL [Concomitant]
     Dosage: UNK
  8. METFORMIN [Concomitant]
     Dosage: UNK

REACTIONS (5)
  - PNEUMONIA [None]
  - ASPIRATION [None]
  - BLOOD BILIRUBIN ABNORMAL [None]
  - HYPOTENSION [None]
  - SMALL INTESTINAL OBSTRUCTION [None]
